FAERS Safety Report 8835079 (Version 1)
Quarter: 2012Q4

REPORT INFORMATION
  Report Type: 
  Country: US (occurrence: US)
  Receive Date: 20121010
  Receipt Date: 20121010
  Transmission Date: 20130627
  Serious: Yes (Hospitalization)
  Sender: FDA-Public Use
  Company Number: US-GILEAD-2012-0060708

PATIENT
  Age: 49 Year
  Sex: Female

DRUGS (5)
  1. LETAIRIS [Suspect]
     Indication: PRODUCT USED FOR UNKNOWN INDICATION
     Dosage: 10 mg, UNK
     Route: 048
     Dates: start: 20120417
  2. TYVASO [Suspect]
     Indication: COR PULMONALE CHRONIC
     Dosage: UNK
     Dates: start: 20120612
  3. ZOLPIDEM [Suspect]
     Dosage: 5 mg, UNK
     Dates: start: 2012
  4. COUMADIN /00014802/ [Concomitant]
  5. ZYRTEC [Concomitant]

REACTIONS (3)
  - Speech disorder [Unknown]
  - Road traffic accident [Unknown]
  - Loss of consciousness [Unknown]
